FAERS Safety Report 8887608 (Version 1)
Quarter: 2012Q4

REPORT INFORMATION
  Report Type: Spontaneous
  Country: US (occurrence: None)
  Receive Date: 20121101
  Receipt Date: 20121101
  Transmission Date: 20130627
  Serious: Yes (Other)
  Sender: FDA-Public Use
  Company Number: None

PATIENT
  Age: 25 Year
  Sex: Female
  Weight: 77.11 kg

DRUGS (2)
  1. HALOBETASOL PROPIONATE [Suspect]
     Indication: ECZEMA
     Dosage: 3x-4x per day, top
     Route: 061
     Dates: start: 19980515, end: 20120707
  2. TRIAMCINOLONE [Suspect]
     Dosage: 3x - 4x per day, top
     Route: 061

REACTIONS (10)
  - Drug dependence [None]
  - Glaucoma [None]
  - Drug withdrawal syndrome [None]
  - Erythema [None]
  - Wound secretion [None]
  - Pruritus [None]
  - Burning sensation [None]
  - Pyrexia [None]
  - Insomnia [None]
  - Discomfort [None]
